FAERS Safety Report 15526298 (Version 1)
Quarter: 2018Q4

REPORT INFORMATION
  Report Type: Spontaneous
  Country: FR (occurrence: FR)
  Receive Date: 20181018
  Receipt Date: 20181018
  Transmission Date: 20190205
  Serious: Yes (Hospitalization, Other)
  Sender: FDA-Public Use
  Company Number: FR-PFIZER INC-2018418199

PATIENT
  Age: 57 Year
  Sex: Female

DRUGS (3)
  1. AMOXICILLIN CLAVULANIC ACID [Suspect]
     Active Substance: AMOXICILLIN\CLAVULANIC ACID
     Dosage: 1 G, TID
     Dates: start: 201803
  2. EFFERALGAN [PARACETAMOL] [Concomitant]
     Dosage: UNK
  3. IBUPROFEN. [Suspect]
     Active Substance: IBUPROFEN
     Dosage: UNK UNK, 3X/DAY
     Dates: start: 2018, end: 2018

REACTIONS (8)
  - Speech disorder [Unknown]
  - Product substitution issue [Unknown]
  - Apallic syndrome [Unknown]
  - Cardiac arrest [Unknown]
  - Hypersensitivity [Unknown]
  - Painful respiration [Unknown]
  - Coma [Unknown]
  - Angioedema [Unknown]

NARRATIVE: CASE EVENT DATE: 2018
